FAERS Safety Report 4580688-5 (Version None)
Quarter: 2005Q1

REPORT INFORMATION
  Report Type: 
  Country: None (occurrence: None)
  Receive Date: 20050127
  Receipt Date: 20041026
  Transmission Date: 20050727
  Serious: No
  Sender: FDA-Public Use
  Company Number: USA040875940

PATIENT
  Age: 5 Year
  Sex: Male
  Weight: 27 kg

DRUGS (7)
  1. STRATTERA [Suspect]
     Indication: ATTENTION DEFICIT/HYPERACTIVITY DISORDER
     Dates: start: 20030601
  2. FLONASE [Concomitant]
  3. SINGULAIR (MONTELUKAST) [Concomitant]
  4. ZYRTEC [Concomitant]
  5. ALBUTEROL [Concomitant]
  6. PULMICORT [Concomitant]
  7. ALLERGY SHOT [Concomitant]

REACTIONS (1)
  - TIC [None]
